FAERS Safety Report 8255508-8 (Version None)
Quarter: 2012Q2

REPORT INFORMATION
  Report Type: 
  Country: None (occurrence: None)
  Receive Date: 20120403
  Receipt Date: 20120328
  Transmission Date: 20120825
  Serious: No
  Sender: FDA-Public Use
  Company Number: US-PFIZER INC-2012080737

PATIENT
  Age: 73 Year
  Sex: Female

DRUGS (1)
  1. INDERAL [Suspect]
     Dosage: UNK
     Route: 065

REACTIONS (1)
  - DIZZINESS [None]
